FAERS Safety Report 10597136 (Version 2)
Quarter: 2015Q1

REPORT INFORMATION
  Report Type: Spontaneous
  Country: FR (occurrence: FR)
  Receive Date: 20141121
  Receipt Date: 20150218
  Transmission Date: 20150720
  Serious: Yes (Hospitalization)
  Sender: FDA-Public Use
  Company Number: FR-ASTRAZENECA-2014SE87122

PATIENT
  Age: 989 Month
  Sex: Female

DRUGS (9)
  1. PRADAXA [Suspect]
     Active Substance: DABIGATRAN ETEXILATE MESYLATE
     Dosage: FORMER TREATMENT, 110 MG, TWO TIMES A DAY
     Route: 048
  2. INEXIUM [Suspect]
     Active Substance: ESOMEPRAZOLE
     Indication: ABDOMINAL PAIN UPPER
     Route: 048
     Dates: start: 20141007, end: 20141012
  3. TERBUTALINE ARROW [Suspect]
     Active Substance: TERBUTALINE
     Indication: LUNG DISORDER
     Route: 055
     Dates: start: 20141003
  4. GAVISCON [Suspect]
     Active Substance: ALUMINUM HYDROXIDE\MAGNESIUM CARBONATE
     Route: 048
     Dates: start: 20141007, end: 20141012
  5. TANAKAN [Suspect]
     Active Substance: GINKGO
     Dosage: FORMER TREATMENT, 40 MG TWO TIMES A DAY
     Route: 048
  6. IPRATROPIUM ARROW [Suspect]
     Active Substance: IPRATROPIUM
     Indication: LUNG DISORDER
     Route: 055
     Dates: start: 20141003
  7. MUCOMYSTENDO [Suspect]
     Active Substance: ACETYLCYSTEINE
     Indication: LUNG DISORDER
     Route: 065
     Dates: start: 20141006
  8. CEFTRIAXONE MYLAN [Suspect]
     Active Substance: CEFTRIAXONE
     Indication: LUNG DISORDER
     Dosage: 1 GRAM FOR 30 MINUTES, 1 DF EVERYDAY
     Route: 042
     Dates: start: 20141002
  9. FLECAINE [Suspect]
     Active Substance: FLECAINIDE
     Indication: ATRIAL FIBRILLATION
     Dosage: FORMER TREATMENT, 100 MG, EVERY DAY
     Route: 048

REACTIONS (6)
  - C-reactive protein increased [Unknown]
  - Bronchitis [Unknown]
  - Sputum purulent [Unknown]
  - Eosinophilia [Recovering/Resolving]
  - Productive cough [Unknown]
  - Sinusitis [Unknown]

NARRATIVE: CASE EVENT DATE: 201410
